FAERS Safety Report 6882047-9 (Version None)
Quarter: 2010Q3

REPORT INFORMATION
  Report Type: 
  Country: None (occurrence: None)
  Receive Date: 20100727
  Receipt Date: 20100721
  Transmission Date: 20110219
  Serious: Yes (Hospitalization)
  Sender: FDA-Public Use
  Company Number: 2010SP031393

PATIENT
  Age: 41 Year
  Sex: Female
  Weight: 72.5755 kg

DRUGS (3)
  1. NUVARING [Suspect]
     Indication: CONTRACEPTION
     Dates: start: 20070101, end: 20070101
  2. LEVOTHYROXINE [Concomitant]
  3. ACETAMINOPHEN [Concomitant]

REACTIONS (2)
  - DEEP VEIN THROMBOSIS [None]
  - HYPOCOAGULABLE STATE [None]
